FAERS Safety Report 6298333-X (Version None)
Quarter: 2009Q3

REPORT INFORMATION
  Report Type: 
  Country: None (occurrence: None)
  Receive Date: 20090805
  Receipt Date: 20090727
  Transmission Date: 20100115
  Serious: Yes (Other)
  Sender: FDA-Public Use
  Company Number: PHEH2009US07669

PATIENT
  Age: 64 Year
  Sex: Female

DRUGS (2)
  1. MIACALCIN [Suspect]
     Indication: BONE DISORDER
     Dosage: UNK
     Dates: start: 20050101
  2. FOSAMAX [Suspect]
     Dosage: UNK
     Dates: start: 20030101, end: 20050101

REACTIONS (5)
  - BONE OPERATION [None]
  - ORAL PAIN [None]
  - OSTEONECROSIS [None]
  - OSTEOPENIA [None]
  - THERMAL BURN [None]
